FAERS Safety Report 18420236 (Version 1)
Quarter: 2020Q4

REPORT INFORMATION
  Report Type: Spontaneous
  Country: GB (occurrence: GB)
  Receive Date: 20201023
  Receipt Date: 20201023
  Transmission Date: 20210114
  Serious: Yes (Hospitalization)
  Sender: FDA-Public Use
  Company Number: GB-VERTEX PHARMACEUTICALS-2020-020673

PATIENT
  Sex: Male

DRUGS (6)
  1. VITAMIN A [RETINOL] [Concomitant]
     Active Substance: RETINOL
  2. VIT D [Concomitant]
     Active Substance: VITAMIN D NOS
  3. SALBUTAMOL [Concomitant]
     Active Substance: ALBUTEROL
     Dosage: INHALER
  4. CREON [Concomitant]
     Active Substance: PANCRELIPASE AMYLASE\PANCRELIPASE LIPASE\PANCRELIPASE PROTEASE
  5. VITAMIN E [Concomitant]
     Active Substance: .ALPHA.-TOCOPHEROL
  6. ORKAMBI [Suspect]
     Active Substance: IVACAFTOR\LUMACAFTOR
     Indication: CYSTIC FIBROSIS
     Dosage: 2 DOSAGE FORM, BID
     Route: 048

REACTIONS (1)
  - Pseudomonas infection [Unknown]

NARRATIVE: CASE EVENT DATE: 20201012
